FAERS Safety Report 8816526 (Version 2)
Quarter: 2012Q4

REPORT INFORMATION
  Report Type: Spontaneous
  Country: US (occurrence: None)
  Receive Date: 20120927
  Receipt Date: 20121114
  Transmission Date: 20130627
  Serious: Yes (Death, Hospitalization, Other)
  Sender: FDA-Public Use
  Company Number: QSC-2012-0203

PATIENT
  Age: 70 Year
  Sex: Female

DRUGS (19)
  1. ADRENOCORTICOTROPHIC HORMONE [Suspect]
     Indication: NEPHROTIC SYNDROME
     Route: 030
     Dates: start: 20120820, end: 20120903
  2. LOSARTAN (LOSARTAN) [Concomitant]
  3. SPIRONOLACTONE (SPIRONOLACTONE) [Concomitant]
  4. LASIX (FUROSEMIDE) [Concomitant]
  5. KEPPRA (LEVETIRACETAM) [Concomitant]
  6. PLAVIX (CLOPIDOGREL BISULFATE) [Concomitant]
  7. AMLODIPINE (AMLODIPINE) [Concomitant]
  8. LABETALOL (LABTALOL) [Concomitant]
  9. ALPRAZOLAM (ALPRAZOLAM) [Concomitant]
  10. LEVOTHYROXINE (LEVOTHYROXINE) [Concomitant]
  11. CRSETOR (ROSUVASTATIN CALCIUM) [Concomitant]
  12. OMEPRAZOLE (OMEPRAZOLE) [Concomitant]
  13. ACETAMINOPHEN (PARACETAMOL),ACETYLSAL ACID,CAFFEINE CITRATE [Concomitant]
  14. OXYCODONE (OXYCODONE) [Concomitant]
  15. ASPIRIN (ACETYLSALICYCLIC AICD) [Concomitant]
  16. SALT (SODIUM CHLORIDE) [Concomitant]
  17. MAGNESIUM OXIDE (MAGNESIUM OXIDE) [Concomitant]
  18. VITAMIN D NOS (VITAMIN D NOS) [Concomitant]
  19. CALCIUM CITRATE (CALCIUM CITRATE) [Concomitant]

REACTIONS (15)
  - Respiratory failure [None]
  - Pneumonia aspiration [None]
  - Inappropriate antidiuretic hormone secretion [None]
  - Hyponatraemia [None]
  - Oesophagitis [None]
  - Diverticular perforation [None]
  - Gastrointestinal haemorrhage [None]
  - Hypotension [None]
  - Abscess intestinal [None]
  - General physical health deterioration [None]
  - Oxygen saturation decreased [None]
  - Pulmonary embolism [None]
  - Hypophagia [None]
  - Pallor [None]
  - Pneumonia aspiration [None]
